FAERS Safety Report 17424378 (Version 1)
Quarter: 2020Q1

REPORT INFORMATION
  Report Type: Spontaneous
  Country: CA (occurrence: CA)
  Receive Date: 20200217
  Receipt Date: 20200217
  Transmission Date: 20200409
  Serious: Yes (Other)
  Sender: FDA-Public Use
  Company Number: CA-TEVA-2020-CA-1184303

PATIENT
  Age: 48 Year
  Sex: Female

DRUGS (10)
  1. LEFLUNOMIDE. [Suspect]
     Active Substance: LEFLUNOMIDE
     Indication: PRODUCT USED FOR UNKNOWN INDICATION
     Route: 065
  2. SYNTHROID [Concomitant]
     Active Substance: LEVOTHYROXINE SODIUM
  3. VENTOLIN [Concomitant]
     Active Substance: ALBUTEROL SULFATE
  4. AMLODIPINE [Concomitant]
     Active Substance: AMLODIPINE BESYLATE
  5. HYDROCHLOROTHIAZIDE. [Concomitant]
     Active Substance: HYDROCHLOROTHIAZIDE
  6. METHOTREXATE. [Suspect]
     Active Substance: METHOTREXATE
     Indication: RHEUMATOID ARTHRITIS
     Route: 058
  7. ACETAMINOPHEN. [Concomitant]
     Active Substance: ACETAMINOPHEN
  8. CHONDROITINE [Concomitant]
     Active Substance: CHONDROITIN SULFATE SODIUM NOS
  9. FOLIC ACID. [Concomitant]
     Active Substance: FOLIC ACID
     Dosage: 5 MILLIGRAM DAILY;
  10. GLUCOSAMINE [Concomitant]
     Active Substance: GLUCOSAMINE

REACTIONS (17)
  - Arthralgia [Unknown]
  - Condition aggravated [Unknown]
  - Hepatic steatosis [Unknown]
  - Intervertebral disc disorder [Unknown]
  - Joint effusion [Unknown]
  - Dysstasia [Unknown]
  - Product use issue [Unknown]
  - Joint swelling [Unknown]
  - Osteoarthritis [Unknown]
  - Mobility decreased [Unknown]
  - Toxicity to various agents [Unknown]
  - Drug ineffective [Unknown]
  - Hypertension [Unknown]
  - Gait disturbance [Unknown]
  - Hepatotoxicity [Unknown]
  - Lethargy [Unknown]
  - Off label use [Unknown]
